FAERS Safety Report 13048873 (Version 1)
Quarter: 2016Q4

REPORT INFORMATION
  Report Type: Spontaneous
  Country: US (occurrence: US)
  Receive Date: 20161221
  Receipt Date: 20161221
  Transmission Date: 20170207
  Serious: No
  Sender: FDA-Public Use
  Company Number: US-SHIRE-US201619686

PATIENT
  Sex: Male
  Weight: 147.39 kg

DRUGS (1)
  1. VYVANSE [Suspect]
     Active Substance: LISDEXAMFETAMINE DIMESYLATE
     Indication: PRODUCT USED FOR UNKNOWN INDICATION
     Dosage: 100 MG (TWO 50 MG CAPSULES), 1X/DAY:QD

REACTIONS (3)
  - Prescribed overdose [Not Recovered/Not Resolved]
  - Road traffic accident [Recovered/Resolved]
  - Psychomotor hyperactivity [Unknown]
